FAERS Safety Report 11838001 (Version 1)
Quarter: 2015Q4

REPORT INFORMATION
  Report Type: Spontaneous
  Country: US (occurrence: US)
  Receive Date: 20151215
  Receipt Date: 20151215
  Transmission Date: 20160305
  Serious: No
  Sender: FDA-Public Use
  Company Number: US-G+W LABORATORIES-1045518

PATIENT
  Sex: Male

DRUGS (1)
  1. CLOBETASOL PROPIONATE. [Suspect]
     Active Substance: CLOBETASOL PROPIONATE
     Indication: RASH GENERALISED
     Route: 061
     Dates: start: 20151118, end: 2015

REACTIONS (2)
  - Adverse drug reaction [Unknown]
  - Rash generalised [Unknown]

NARRATIVE: CASE EVENT DATE: 201511
